FAERS Safety Report 4634145-8 (Version None)
Quarter: 2005Q2

REPORT INFORMATION
  Report Type: 
  Country: None (occurrence: None)
  Receive Date: 20050405
  Receipt Date: 20050324
  Transmission Date: 20051028
  Serious: Yes (Hospitalization, Other)
  Sender: FDA-Public Use
  Company Number: 200510040BFR

PATIENT
  Age: 6 Year
  Sex: Male
  Weight: 17 kg

DRUGS (17)
  1. KOGENATE [Suspect]
     Indication: HAEMOPHILIA
     Dosage: SEE IMAGE
     Route: 042
     Dates: start: 20041130, end: 20041212
  2. KOGENATE [Suspect]
     Indication: HAEMOPHILIA
     Dosage: SEE IMAGE
     Route: 042
     Dates: start: 20041124
  3. KOGENATE [Suspect]
     Indication: HAEMOPHILIA
     Dosage: SEE IMAGE
     Route: 042
     Dates: start: 20041125
  4. KOGENATE [Suspect]
     Indication: HAEMOPHILIA
     Dosage: SEE IMAGE
     Route: 042
     Dates: start: 20041126
  5. KOGENATE [Suspect]
     Indication: HAEMOPHILIA
     Dosage: SEE IMAGE
     Route: 042
     Dates: start: 20041127
  6. KOGENATE [Suspect]
     Indication: HAEMOPHILIA
     Dosage: SEE IMAGE
     Route: 042
     Dates: start: 20041128
  7. KOGENATE [Suspect]
     Indication: HAEMOPHILIA
     Dosage: SEE IMAGE
     Route: 042
     Dates: start: 20041129
  8. KOGENATE [Suspect]
     Indication: HAEMOPHILIA
     Dosage: SEE IMAGE
     Route: 042
     Dates: start: 20041213
  9. KOGENATE [Suspect]
     Indication: HAEMOPHILIA
     Dosage: SEE IMAGE
     Route: 042
     Dates: start: 20041215
  10. KOGENATE [Suspect]
     Indication: HAEMOPHILIA
     Dosage: SEE IMAGE
     Route: 042
     Dates: start: 20041217
  11. KOGENATE [Suspect]
     Indication: HAEMOPHILIA
     Dosage: SEE IMAGE
     Route: 042
     Dates: start: 20041220
  12. KOGENATE [Suspect]
     Indication: HAEMOPHILIA
     Dosage: SEE IMAGE
     Route: 042
     Dates: start: 20041222
  13. KOGENATE [Suspect]
     Indication: HAEMOPHILIA
     Dosage: SEE IMAGE
     Route: 042
     Dates: start: 20041224
  14. KOGENATE [Suspect]
     Indication: HAEMOPHILIA
     Dosage: SEE IMAGE
     Route: 042
     Dates: start: 20041227
  15. KOGENATE [Suspect]
     Indication: HAEMOPHILIA
     Dosage: SEE IMAGE
     Route: 042
     Dates: start: 20041229
  16. KOGENATE [Suspect]
  17. KOGENATE [Suspect]

REACTIONS (4)
  - ANTI FACTOR VIII ANTIBODY POSITIVE [None]
  - DISEASE RECURRENCE [None]
  - HAEMARTHROSIS [None]
  - HAEMATOMA [None]
